FAERS Safety Report 10435668 (Version 2)
Quarter: 2014Q4

REPORT INFORMATION
  Report Type: Spontaneous
  Country: US (occurrence: US)
  Receive Date: 20140908
  Receipt Date: 20141002
  Transmission Date: 20150528
  Serious: No
  Sender: FDA-Public Use
  Company Number: US-ROXANE LABORATORIES, INC.-2014-RO-01325RO

PATIENT
  Sex: Female

DRUGS (1)
  1. IRBESARTAN. [Suspect]
     Active Substance: IRBESARTAN
     Indication: BLOOD PRESSURE MANAGEMENT
     Route: 048

REACTIONS (2)
  - Drug ineffective [Unknown]
  - Product quality issue [Unknown]
